FAERS Safety Report 16170692 (Version 2)
Quarter: 2019Q4

REPORT INFORMATION
  Report Type: Spontaneous
  Country: AT (occurrence: AT)
  Receive Date: 20190408
  Receipt Date: 20191227
  Transmission Date: 20200122
  Serious: Yes (Hospitalization, Other)
  Sender: FDA-Public Use
  Company Number: AT-MYLANLABS-2019M1031449

PATIENT
  Age: 39 Year
  Sex: Female

DRUGS (22)
  1. LOPINAVIR/RITONAVIR [Suspect]
     Active Substance: LOPINAVIR\RITONAVIR
     Indication: ANTIRETROVIRAL THERAPY
     Dosage: UNK
     Route: 048
  2. LAMIVUDINE. [Suspect]
     Active Substance: LAMIVUDINE
     Dosage: 4TH THERAPY
  3. 3TC COMPLEX [Suspect]
     Active Substance: LAMIVUDINE\ZIDOVUDINE
     Indication: HIV INFECTION
     Dosage: UNK
     Route: 048
  4. PREZISTA [Concomitant]
     Active Substance: DARUNAVIR ETHANOLATE
     Indication: PRODUCT USED FOR UNKNOWN INDICATION
     Dosage: 1200 MILLIGRAM, QD
     Route: 048
  5. STAVUDINE. [Suspect]
     Active Substance: STAVUDINE
     Dosage: UNK,3RD THERAPY
  6. INDINAVIR W/RITONAVIR [Suspect]
     Active Substance: INDINAVIR\RITONAVIR
     Indication: ANTIRETROVIRAL THERAPY
     Dosage: UNK
  7. EFAVIRENZ. [Suspect]
     Active Substance: EFAVIRENZ
     Indication: ANTIRETROVIRAL THERAPY
     Dosage: UNK
  8. LAMIVUDINE. [Suspect]
     Active Substance: LAMIVUDINE
     Indication: ANTIRETROVIRAL THERAPY
     Dosage: 1ST THERAPY
  9. ZIDOVUDINE. [Suspect]
     Active Substance: ZIDOVUDINE
     Dosage: UNK
     Route: 048
  10. EFAVIRENZ. [Suspect]
     Active Substance: EFAVIRENZ
     Dosage: 4TH THERAPY
  11. LAMIVUDINE. [Suspect]
     Active Substance: LAMIVUDINE
     Dosage: 2ND THERAPY
  12. ENFUVIRTIDE. [Suspect]
     Active Substance: ENFUVIRTIDE
     Indication: HIV INFECTION
     Dosage: UNK
     Route: 048
  13. ZIDOVUDINE. [Suspect]
     Active Substance: ZIDOVUDINE
     Indication: ANTIRETROVIRAL THERAPY
     Dosage: UNK,4TH THERAPY
     Route: 048
  14. ZIDOVUDINE. [Suspect]
     Active Substance: ZIDOVUDINE
     Dosage: UNK,5TH THERAPY
     Route: 048
  15. STAVUDINE. [Suspect]
     Active Substance: STAVUDINE
     Dosage: UNK
  16. LAMIVUDINE. [Suspect]
     Active Substance: LAMIVUDINE
     Dosage: 5TH THERAPY
  17. DIDANOSINE. [Suspect]
     Active Substance: DIDANOSINE
     Indication: ANTIRETROVIRAL THERAPY
     Dosage: UNK
  18. ISENTRESS [Suspect]
     Active Substance: RALTEGRAVIR POTASSIUM
     Indication: HIV INFECTION
     Dosage: 800 MILLIGRAM, QD
     Route: 048
  19. STAVUDINE. [Suspect]
     Active Substance: STAVUDINE
     Indication: ANTIRETROVIRAL THERAPY
     Dosage: UNK,2ND THERAPY
  20. EFAVIRENZ. [Suspect]
     Active Substance: EFAVIRENZ
     Dosage: 3RD THERAPY
  21. ZIDOVUDINE. [Suspect]
     Active Substance: ZIDOVUDINE
     Dosage: UNK
  22. LPV                                /00001802/ [Concomitant]
     Indication: HIV INFECTION
     Dosage: UNK
     Route: 048

REACTIONS (6)
  - Acute stress disorder [Unknown]
  - Premature rupture of membranes [Recovered/Resolved]
  - Viral load increased [Unknown]
  - Drug abuse [Unknown]
  - Exposure during pregnancy [Recovered/Resolved]
  - Rebound effect [Unknown]
